FAERS Safety Report 6480610-0 (Version None)
Quarter: 2009Q4

REPORT INFORMATION
  Report Type: 
  Country: None (occurrence: None)
  Receive Date: 20091203
  Receipt Date: 20091121
  Transmission Date: 20100525
  Serious: Yes (Hospitalization, Other)
  Sender: FDA-Public Use
  Company Number: 233432J09USA

PATIENT
  Age: 71 Year
  Sex: Female

DRUGS (2)
  1. REBIF [Suspect]
     Indication: MULTIPLE SCLEROSIS
     Dosage: 44 MCG, 3 IN 1 WEEKS, SUBCUTANEOUS
     Route: 058
     Dates: start: 20061218, end: 20091101
  2. REBIF [Suspect]
     Indication: MULTIPLE SCLEROSIS
     Dosage: 44 MCG, 3 IN 1 WEEKS, SUBCUTANEOUS
     Route: 058
     Dates: start: 20091123

REACTIONS (12)
  - ABDOMINAL PAIN [None]
  - ANAEMIA [None]
  - DYSPNOEA [None]
  - GASTRIC ULCER [None]
  - INTERVERTEBRAL DISC DISORDER [None]
  - MUSCULAR WEAKNESS [None]
  - NEPHROLITHIASIS [None]
  - PLATELET COUNT DECREASED [None]
  - ROTATOR CUFF SYNDROME [None]
  - TREMOR [None]
  - URINARY TRACT INFECTION [None]
  - WHITE BLOOD CELL COUNT DECREASED [None]
